FAERS Safety Report 9350869 (Version 1)
Quarter: 2013Q2

REPORT INFORMATION
  Report Type: Spontaneous
  Country: US (occurrence: US)
  Receive Date: 20130617
  Receipt Date: 20130617
  Transmission Date: 20140414
  Serious: No
  Sender: FDA-Public Use
  Company Number: US-PFIZER INC-2013169423

PATIENT
  Age: 64 Year
  Sex: Female
  Weight: 54.42 kg

DRUGS (4)
  1. RELPAX [Suspect]
     Indication: MIGRAINE
     Dosage: 20 MG, 1X/DAY
     Route: 048
     Dates: start: 2009
  2. RELPAX [Suspect]
     Dosage: 40 MG, 1X/DAY
     Route: 048
  3. RELPAX [Suspect]
     Dosage: 30 MG (BY CUTTING 40MG TABLET), 1X/DAY
     Route: 048
  4. TOPIRAMATE [Concomitant]
     Dosage: 100 MG, UNK

REACTIONS (3)
  - Off label use [Unknown]
  - Intentional drug misuse [Unknown]
  - Drug ineffective [Unknown]
